FAERS Safety Report 13792857 (Version 1)
Quarter: 2017Q3

REPORT INFORMATION
  Report Type: Spontaneous
  Country: US (occurrence: US)
  Receive Date: 20170725
  Receipt Date: 20170725
  Transmission Date: 20171127
  Serious: Yes (Disabling)
  Sender: FDA-Public Use
  Company Number: None

PATIENT
  Age: 78 Year
  Sex: Female
  Weight: 56.75 kg

DRUGS (3)
  1. KENALOG [Suspect]
     Active Substance: TRIAMCINOLONE ACETONIDE
     Indication: DERMATITIS
     Dosage: ONE INJECTION AND SOLUTION FOR REACTION; 2XDAY INJECTION AND SOLUTION ON SCALP
     Dates: start: 20170519, end: 20170703
  2. PREMARIN [Concomitant]
     Active Substance: ESTROGENS, CONJUGATED
  3. CLINDAMYCIN PHOSPHATE. [Suspect]
     Active Substance: CLINDAMYCIN PHOSPHATE

REACTIONS (3)
  - Folliculitis [None]
  - Dehydration [None]
  - Drug hypersensitivity [None]

NARRATIVE: CASE EVENT DATE: 20170519
